FAERS Safety Report 9493048 (Version 1)
Quarter: 2013Q3

REPORT INFORMATION
  Report Type: Spontaneous
  Country: US (occurrence: US)
  Receive Date: 20130902
  Receipt Date: 20130902
  Transmission Date: 20140515
  Serious: Yes (Hospitalization)
  Sender: FDA-Public Use
  Company Number: US-BIOGENIDEC-2013BI081594

PATIENT
  Age: 72 Year
  Sex: Female

DRUGS (7)
  1. TECFIDERA [Suspect]
     Indication: MULTIPLE SCLEROSIS
     Route: 048
     Dates: start: 201306, end: 201306
  2. TECFIDERA [Suspect]
     Indication: MULTIPLE SCLEROSIS
     Route: 048
     Dates: start: 201306
  3. AVONEX [Concomitant]
     Indication: MULTIPLE SCLEROSIS
     Route: 030
     Dates: start: 20020801, end: 2012
  4. AVONEX [Concomitant]
     Indication: MULTIPLE SCLEROSIS
     Route: 030
     Dates: start: 2012, end: 20130304
  5. LISINOPRIL [Concomitant]
     Indication: HYPERTENSION
     Dates: start: 201307
  6. LIPITOR [Concomitant]
     Indication: BLOOD CHOLESTEROL INCREASED
     Dates: start: 201307
  7. BABY ASPIRIN [Concomitant]
     Indication: CEREBROVASCULAR ACCIDENT
     Dates: start: 20130721

REACTIONS (5)
  - Cerebrovascular accident [Recovered/Resolved with Sequelae]
  - Renal cyst [Not Recovered/Not Resolved]
  - Hypertension [Unknown]
  - Blood cholesterol increased [Unknown]
  - White blood cell count abnormal [Unknown]
